APPROVED DRUG PRODUCT: TIMOLOL MALEATE
Active Ingredient: TIMOLOL MALEATE
Strength: EQ 0.25% BASE
Dosage Form/Route: SOLUTION/DROPS;OPHTHALMIC
Application: A216533 | Product #001 | TE Code: AT3
Applicant: INGENUS PHARMACEUTICALS LLC
Approved: Sep 13, 2022 | RLD: No | RS: No | Type: RX